FAERS Safety Report 25904775 (Version 1)
Quarter: 2025Q4

REPORT INFORMATION
  Report Type: Report from Study
  Country: US (occurrence: US)
  Receive Date: 20251010
  Receipt Date: 20251010
  Transmission Date: 20260118
  Serious: Yes (Other)
  Sender: UPSHER SMITH LABORATORIES
  Company Number: US-UPSHER-SMITH LABORATORIES, LLC-20250901272

PATIENT
  Sex: Male
  Weight: 136.05 kg

DRUGS (2)
  1. ISOTRETINOIN [Suspect]
     Active Substance: ISOTRETINOIN
     Indication: Acne
     Dosage: 40 MG, QD
     Route: 048
     Dates: start: 20250807, end: 2025
  2. ZENATANE [Concomitant]
     Active Substance: ISOTRETINOIN
     Indication: Product used for unknown indication
     Dosage: 40 MG
     Route: 065

REACTIONS (1)
  - Mood altered [Recovered/Resolved]

NARRATIVE: CASE EVENT DATE: 20250101
